FAERS Safety Report 4665859-1 (Version None)
Quarter: 2005Q2

REPORT INFORMATION
  Report Type: 
  Country: None (occurrence: None)
  Receive Date: 20050516
  Receipt Date: 20050516
  Transmission Date: 20051028
  Serious: Yes (Hospitalization, Other)
  Sender: FDA-Public Use
  Company Number: None

PATIENT
  Sex: Male
  Weight: 67 kg

DRUGS (5)
  1. TEMODAR [Suspect]
     Indication: GLIOBLASTOMA MULTIFORME
     Dates: start: 20050503
  2. RADIATION [Suspect]
  3. IRINOTECAN HCL [Suspect]
  4. DILANTIN [Concomitant]
  5. KEPPRA [Concomitant]

REACTIONS (2)
  - CONFUSIONAL STATE [None]
  - CONVULSION [None]
